FAERS Safety Report 7197591-7 (Version None)
Quarter: 2010Q4

REPORT INFORMATION
  Report Type: 
  Country: None (occurrence: None)
  Receive Date: 20101213
  Receipt Date: 20101201
  Transmission Date: 20110411
  Serious: Yes (Other)
  Sender: FDA-Public Use
  Company Number: 023126

PATIENT
  Age: 32 Year
  Sex: Male

DRUGS (6)
  1. KEPPRA [Suspect]
     Indication: MYOCLONIC EPILEPSY
     Dosage: 2000 MG, 500 MG ORAL (3000MG, 500 MG ORAL)
     Route: 048
     Dates: start: 20101019, end: 20101128
  2. CLONAZEPAM [Concomitant]
  3. ZYPREXA [Concomitant]
  4. BIFIDOBACTERIUM BIFIDUM [Concomitant]
  5. SILECE [Concomitant]
  6. GASTER [Concomitant]

REACTIONS (2)
  - LIVER FUNCTION TEST ABNORMAL [None]
  - RED BLOOD CELL COUNT DECREASED [None]
